FAERS Safety Report 20999914 (Version 1)
Quarter: 2022Q2

REPORT INFORMATION
  Report Type: Report from Study
  Country: US (occurrence: US)
  Receive Date: 20220623
  Receipt Date: 20220623
  Transmission Date: 20220721
  Serious: Yes (Other)
  Sender: FDA-Public Use
  Company Number: US-JNJFOC-20220629742

PATIENT

DRUGS (1)
  1. TOPIRAMATE [Suspect]
     Active Substance: TOPIRAMATE
     Indication: Seizure
     Route: 065

REACTIONS (23)
  - Angle closure glaucoma [Unknown]
  - Seizure [Unknown]
  - Thrombocytopenia [Unknown]
  - Exposure during pregnancy [Unknown]
  - Eating disorder [Unknown]
  - Myokymia [Unknown]
  - Temperature intolerance [Unknown]
  - Condition aggravated [Unknown]
  - Adverse event [Unknown]
  - Headache [Unknown]
  - Migraine [Unknown]
  - Feeling abnormal [Unknown]
  - Emotional disorder [Unknown]
  - Product dose omission issue [Unknown]
  - Nausea [Unknown]
  - Weight decreased [Unknown]
  - Dizziness [Unknown]
  - Fatigue [Unknown]
  - Paraesthesia [Unknown]
  - Somnolence [Unknown]
  - Drug ineffective [Unknown]
  - Depression [Unknown]
  - Off label use [Unknown]
